FAERS Safety Report 12840657 (Version 1)
Quarter: 2016Q4

REPORT INFORMATION
  Report Type: Spontaneous
  Country: PT (occurrence: PT)
  Receive Date: 20161012
  Receipt Date: 20161012
  Transmission Date: 20170207
  Serious: Yes (Other)
  Sender: FDA-Public Use
  Company Number: PHHY2016PT137649

PATIENT
  Age: 21 Year
  Sex: Male

DRUGS (3)
  1. PROPRANOLOL [Suspect]
     Active Substance: PROPRANOLOL\PROPRANOLOL HYDROCHLORIDE
     Indication: PSYCHOTIC DISORDER
     Dosage: 10 MG, TID
     Route: 065
  2. FLUOXETINE [Suspect]
     Active Substance: FLUOXETINE HYDROCHLORIDE
     Indication: PSYCHOTIC DISORDER
     Dosage: 20 MG, ID
     Route: 065
  3. FLUPENTIXOL [Suspect]
     Active Substance: FLUPENTIXOL
     Indication: PSYCHOTIC DISORDER
     Dosage: 100 MG, QW4
     Route: 065

REACTIONS (3)
  - Emotional disorder [Unknown]
  - Apathy [Unknown]
  - Drug abuse [Unknown]
